FAERS Safety Report 10272593 (Version 1)
Quarter: 2014Q1

REPORT INFORMATION
  Report Type: Spontaneous
  Country: US (occurrence: None)
  Receive Date: 20140306
  Receipt Date: 20140306
  Transmission Date: 20141002
  Serious: Yes (Other)
  Sender: FDA-Public Use
  Company Number: 163-21880-13081150

PATIENT
  Age: 53 Year
  Sex: Male
  Weight: 83 kg

DRUGS (10)
  1. REVLIMID [Suspect]
     Indication: PLASMA CELL MYELOMA
     Dosage: 25 MG, 21 IN 28 D, PO
     Route: 048
     Dates: start: 201306
  2. DEXAMETHASONE (DEXAMETHASONE) (TABLETS) [Concomitant]
  3. PRAVASTATIN SODIUM [Concomitant]
  4. ASPIRIN [Concomitant]
  5. LISINOPRIL [Concomitant]
  6. GABAPENTIN [Concomitant]
  7. METOPROLOL SUCCINATE [Concomitant]
  8. BACTRIM (BACTRIM) (TABLETS) [Concomitant]
  9. PERCOCET (OXYCOCET) (TABLETS) [Concomitant]
  10. VELCADE (BORTEZOMIB) [Concomitant]

REACTIONS (2)
  - Thrombophlebitis superficial [None]
  - Thrombosis [None]
